FAERS Safety Report 8941226 (Version 2)
Quarter: 2013Q1

REPORT INFORMATION
  Report Type: Spontaneous
  Country: US (occurrence: US)
  Receive Date: 20121203
  Receipt Date: 20130129
  Transmission Date: 20140127
  Serious: No
  Sender: FDA-Public Use
  Company Number: US-ELI_LILLY_AND_COMPANY-US201211007052

PATIENT
  Sex: Male

DRUGS (5)
  1. CYMBALTA [Suspect]
     Indication: PAIN
     Dosage: 60 MG, QD
  2. LIALDA [Concomitant]
  3. MS CONTIN [Concomitant]
  4. NORCO [Concomitant]
  5. AMBIEN [Concomitant]

REACTIONS (5)
  - Pain [Unknown]
  - Lower respiratory tract infection [Unknown]
  - Off label use [Unknown]
  - Drug ineffective [Recovered/Resolved]
  - Oropharyngeal pain [Unknown]
